FAERS Safety Report 4835973-6 (Version None)
Quarter: 2005Q4

REPORT INFORMATION
  Report Type: 
  Country: None (occurrence: None)
  Receive Date: 20051123
  Receipt Date: 20051116
  Transmission Date: 20060501
  Serious: Yes (Other)
  Sender: FDA-Public Use
  Company Number: CA-JNJFOC-20051000696

PATIENT
  Sex: Female

DRUGS (9)
  1. REMICADE [Suspect]
     Dosage: 2 VIALS EVERY 6-7 WEEKS.
     Route: 042
  2. REMICADE [Suspect]
     Indication: RHEUMATOID ARTHRITIS
     Route: 042
  3. HYDROCHLOROTHIAZIDE [Concomitant]
  4. ALTACE [Concomitant]
     Dosage: 1 CAPSULE DAILY
  5. NORVASC [Concomitant]
     Dosage: 1 TABLET DAILY
  6. FOLIC ACID [Concomitant]
  7. METHOTREXATE [Concomitant]
     Dosage: 2.5 MG TABLETS, 6 TO 7 TABLETS WEEKLY
  8. ACTONEL [Concomitant]
     Indication: OSTEOPOROSIS
  9. CALCIUM GLUCONATE [Concomitant]
     Indication: OSTEOPOROSIS

REACTIONS (3)
  - BLINDNESS [None]
  - BLINDNESS TRANSIENT [None]
  - RETINAL OEDEMA [None]
